FAERS Safety Report 21766805 (Version 2)
Quarter: 2023Q2

REPORT INFORMATION
  Report Type: Spontaneous
  Country: FR (occurrence: None)
  Receive Date: 20221222
  Receipt Date: 20230508
  Transmission Date: 20230722
  Serious: Yes (Other)
  Sender: FDA-Public Use
  Company Number: FR-Merck Healthcare KGaA-9373201

PATIENT
  Age: 43 Year
  Sex: Female

DRUGS (9)
  1. LEVOTHYROXINE [Suspect]
     Active Substance: LEVOTHYROXINE
     Indication: Hypothyroidism
     Route: 048
  2. LEVOTHYROXINE [Suspect]
     Active Substance: LEVOTHYROXINE
     Indication: Hyperthyroidism
  3. ESCARGOT [Concomitant]
     Active Substance: ESCARGOT
     Indication: Product used for unknown indication
  4. ACETYLLEUCINE, L- [Concomitant]
     Active Substance: ACETYLLEUCINE, L-
     Indication: Product used for unknown indication
  5. BETAHISTINE [Concomitant]
     Active Substance: BETAHISTINE
     Indication: Product used for unknown indication
  6. TOBREX [Concomitant]
     Active Substance: TOBRAMYCIN
     Indication: Product used for unknown indication
  7. DOLIPRANE [Concomitant]
     Active Substance: ACETAMINOPHEN
     Indication: Product used for unknown indication
     Route: 048
  8. NAPROXEN SODIUM [Concomitant]
     Active Substance: NAPROXEN SODIUM
     Indication: Product used for unknown indication
     Dosage: 1 TO 2 TABLETS
     Route: 048
  9. FLECTOREFFIGEL [Concomitant]
     Indication: Product used for unknown indication

REACTIONS (37)
  - Mental impairment [Unknown]
  - Carpal tunnel decompression [Unknown]
  - Dizziness [Unknown]
  - Malaise [Unknown]
  - Orthostatic hypotension [Unknown]
  - Asthenia [Unknown]
  - Dysphagia [Unknown]
  - Musculoskeletal stiffness [Unknown]
  - Gait disturbance [Unknown]
  - Memory impairment [Unknown]
  - Neck pain [Unknown]
  - Pain [Unknown]
  - Vertigo [Unknown]
  - Disturbance in attention [Unknown]
  - Confusional state [Unknown]
  - Mental fatigue [Unknown]
  - Plantar fasciitis [Unknown]
  - Enuresis [Unknown]
  - Migraine [Unknown]
  - Inflammation [Unknown]
  - Blood pressure abnormal [Unknown]
  - Tendonitis [Unknown]
  - Presyncope [Unknown]
  - Dark circles under eyes [Unknown]
  - Antinuclear antibody positive [Unknown]
  - Blood calcium increased [Unknown]
  - Arthralgia [Unknown]
  - Quality of life decreased [Unknown]
  - Fatigue [Unknown]
  - Anxiety [Unknown]
  - Muscle spasms [Unknown]
  - Tachycardia [Unknown]
  - Diarrhoea [Unknown]
  - Insomnia [Unknown]
  - Nausea [Unknown]
  - Drug ineffective [Unknown]
  - Off label use [Unknown]

NARRATIVE: CASE EVENT DATE: 20170601
